FAERS Safety Report 14483382 (Version 1)
Quarter: 2018Q1

REPORT INFORMATION
  Report Type: Spontaneous
  Country: US (occurrence: US)
  Receive Date: 20180204
  Receipt Date: 20180204
  Transmission Date: 20180509
  Serious: No
  Sender: FDA-Public Use
  Company Number: US-TARO-2017TAR00899

PATIENT
  Age: 76 Year
  Sex: Female
  Weight: 108.84 kg

DRUGS (10)
  1. KETOCONAZOLE CREAM 2% [Suspect]
     Active Substance: KETOCONAZOLE
     Dosage: UNK UNK, 2X/DAY
     Route: 061
     Dates: start: 20170814, end: 2017
  2. OXYBUTYNIN. [Concomitant]
     Active Substance: OXYBUTYNIN CHLORIDE
  3. CLOBETASOL PROPIONATE CREAM [Suspect]
     Active Substance: CLOBETASOL PROPIONATE
     Dosage: UNK, 2X/DAY
     Route: 061
     Dates: start: 20170829, end: 2017
  4. WARFARIN [Concomitant]
     Active Substance: WARFARIN
     Dosage: 3 MG, 3X/WEEK
     Route: 048
     Dates: start: 2009
  5. UNSPECIFIED THYROID MEDICATION [Concomitant]
     Active Substance: UNSPECIFIED INGREDIENT
  6. POTASSIUM [Concomitant]
     Active Substance: POTASSIUM
  7. VITAMIN E [Concomitant]
     Active Substance: .ALPHA.-TOCOPHEROL
  8. WARFARIN [Concomitant]
     Active Substance: WARFARIN
     Dosage: 4 MG, 4X/WEEK
     Route: 048
     Dates: start: 2009
  9. UNSPECIFIED VITAMINS [Concomitant]
     Active Substance: VITAMINS
  10. METOPROLOL. [Concomitant]
     Active Substance: METOPROLOL

REACTIONS (1)
  - Drug ineffective [Recovered/Resolved]

NARRATIVE: CASE EVENT DATE: 201708
